FAERS Safety Report 13946134 (Version 4)
Quarter: 2018Q1

REPORT INFORMATION
  Report Type: Report from Study
  Country: US (occurrence: US)
  Receive Date: 20170907
  Receipt Date: 20180226
  Transmission Date: 20180508
  Serious: Yes (Other)
  Sender: FDA-Public Use
  Company Number: US-ROCHE-1988667

PATIENT
  Age: 69 Year
  Sex: Male
  Weight: 102.8 kg

DRUGS (30)
  1. ATEZOLIZUMAB. [Suspect]
     Active Substance: ATEZOLIZUMAB
     Indication: RENAL CELL CARCINOMA
     Dosage: COHORT 4, C1D1
     Route: 042
     Dates: start: 20170202, end: 20170202
  2. ATEZOLIZUMAB. [Suspect]
     Active Substance: ATEZOLIZUMAB
     Dosage: COHORT 4, C2D1
     Route: 042
     Dates: start: 20170302, end: 20170302
  3. CPI-444 (ADENOSINE-A2A RECEPTOR ANTAGONIST) [Suspect]
     Active Substance: CIFORADENANT
     Dosage: COHORT 4, C5D1
     Route: 048
     Dates: start: 20170525, end: 20170621
  4. FLOMAX [Concomitant]
     Active Substance: TAMSULOSIN HYDROCHLORIDE
     Route: 065
     Dates: start: 20170525
  5. ZYLOPRIM [Concomitant]
     Active Substance: ALLOPURINOL
     Route: 065
     Dates: start: 20170714, end: 20170728
  6. SENOKOT [Concomitant]
     Active Substance: SENNOSIDES
     Route: 065
     Dates: start: 20170727, end: 20170728
  7. ATEZOLIZUMAB. [Suspect]
     Active Substance: ATEZOLIZUMAB
     Dosage: COHORT 4, C3D15
     Route: 042
     Dates: start: 20170413, end: 20170413
  8. ATEZOLIZUMAB. [Suspect]
     Active Substance: ATEZOLIZUMAB
     Dosage: COHORT 4, C4D15
     Route: 042
     Dates: start: 20170511, end: 20170511
  9. ATEZOLIZUMAB. [Suspect]
     Active Substance: ATEZOLIZUMAB
     Dosage: COHORT 4, C2D15
     Route: 042
     Dates: start: 20170316, end: 20170316
  10. ATEZOLIZUMAB. [Suspect]
     Active Substance: ATEZOLIZUMAB
     Dosage: COHORT 4, C4D1
     Route: 042
     Dates: start: 20170427, end: 20170427
  11. ATEZOLIZUMAB. [Suspect]
     Active Substance: ATEZOLIZUMAB
     Dosage: COHORT 4, C5D15
     Route: 042
     Dates: start: 20170608, end: 20170608
  12. CPI-444 (ADENOSINE-A2A RECEPTOR ANTAGONIST) [Suspect]
     Active Substance: CIFORADENANT
     Dosage: COHORT 4, C6D1
     Route: 048
     Dates: start: 20170712
  13. LIDOCAINE. [Concomitant]
     Active Substance: LIDOCAINE
     Route: 065
     Dates: start: 20170317
  14. TYLENOL [Concomitant]
     Active Substance: ACETAMINOPHEN
     Route: 065
     Dates: start: 20170727, end: 20170728
  15. NORVASC [Concomitant]
     Active Substance: AMLODIPINE BESYLATE
     Route: 065
     Dates: start: 20170117, end: 20170622
  16. SUBLIMAZE [Concomitant]
     Active Substance: FENTANYL CITRATE
     Route: 065
     Dates: start: 20170317
  17. DEXAMETHASONE. [Concomitant]
     Active Substance: DEXAMETHASONE
     Route: 065
     Dates: start: 20170626
  18. CPI-444 (ADENOSINE-A2A RECEPTOR ANTAGONIST) [Suspect]
     Active Substance: CIFORADENANT
     Indication: RENAL CELL CARCINOMA
     Dosage: COHORT 4, C1D1
     Route: 048
     Dates: start: 20170202
  19. DELTASONE [Concomitant]
     Active Substance: PREDNISONE
     Route: 065
     Dates: start: 20170626
  20. ATEZOLIZUMAB. [Suspect]
     Active Substance: ATEZOLIZUMAB
     Dosage: COHORT 4, C1D14
     Route: 042
     Dates: start: 20170216, end: 20170216
  21. ATEZOLIZUMAB. [Suspect]
     Active Substance: ATEZOLIZUMAB
     Dosage: COHORT 4, C3D1
     Route: 042
     Dates: start: 20170330, end: 20170330
  22. ATEZOLIZUMAB. [Suspect]
     Active Substance: ATEZOLIZUMAB
     Dosage: COHORT 4, C6D1
     Route: 042
     Dates: start: 20170712, end: 20170712
  23. CPI-444 (ADENOSINE-A2A RECEPTOR ANTAGONIST) [Suspect]
     Active Substance: CIFORADENANT
     Dosage: COHORT 4, C2D1
     Route: 048
     Dates: start: 20170302
  24. CPI-444 (ADENOSINE-A2A RECEPTOR ANTAGONIST) [Suspect]
     Active Substance: CIFORADENANT
     Dosage: COHORT 4, C3D1
     Route: 048
     Dates: start: 20170330, end: 20170417
  25. CPI-444 (ADENOSINE-A2A RECEPTOR ANTAGONIST) [Suspect]
     Active Substance: CIFORADENANT
     Dosage: COHORT 4, C4D1
     Route: 048
     Dates: start: 20170428
  26. ZOFRAN [Concomitant]
     Active Substance: ONDANSETRON HYDROCHLORIDE
     Route: 065
     Dates: start: 20170317
  27. ATEZOLIZUMAB. [Suspect]
     Active Substance: ATEZOLIZUMAB
     Dosage: COHORT 4, C5D1
     Route: 042
     Dates: start: 20170525, end: 20170525
  28. CPI-444 (ADENOSINE-A2A RECEPTOR ANTAGONIST) [Suspect]
     Active Substance: CIFORADENANT
     Dosage: COHORT 4, C3D19
     Route: 048
     Dates: start: 20170417
  29. PROTONIX [Concomitant]
     Active Substance: PANTOPRAZOLE SODIUM
     Route: 065
     Dates: start: 20170622
  30. LISINOPRIL. [Concomitant]
     Active Substance: LISINOPRIL
     Route: 065
     Dates: start: 2017, end: 20170727

REACTIONS (1)
  - Hyperkalaemia [Recovered/Resolved]

NARRATIVE: CASE EVENT DATE: 20170727
